FAERS Safety Report 23554410 (Version 4)
Quarter: 2025Q4

REPORT INFORMATION
  Report Type: Spontaneous
  Country: US (occurrence: US)
  Receive Date: 20240222
  Receipt Date: 20251120
  Transmission Date: 20260117
  Serious: No
  Sender: PFIZER
  Company Number: US-PFIZER INC-202400046726

PATIENT
  Age: 81 Year
  Sex: Female

DRUGS (4)
  1. XELJANZ XR [Suspect]
     Active Substance: TOFACITINIB CITRATE
     Dosage: 11 MG
  2. ACETAMINOPHEN [Concomitant]
     Active Substance: ACETAMINOPHEN
     Dosage: UNK
  3. PROLIA [Concomitant]
     Active Substance: DENOSUMAB
     Dosage: UNK
  4. OMEPRAZOLE [Concomitant]
     Active Substance: OMEPRAZOLE
     Dosage: UNK

REACTIONS (1)
  - Headache [Unknown]

NARRATIVE: CASE EVENT DATE: 20240219
